FAERS Safety Report 5212816-2 (Version None)
Quarter: 2007Q1

REPORT INFORMATION
  Report Type: 
  Country: None (occurrence: None)
  Receive Date: 20070119
  Receipt Date: 20070117
  Transmission Date: 20070707
  Serious: Yes (Other)
  Sender: FDA-Public Use
  Company Number: 2006UW19682

PATIENT
  Sex: Female

DRUGS (1)
  1. ARIMIDEX [Suspect]
     Indication: BREAST CANCER
     Route: 048
     Dates: start: 20060901

REACTIONS (5)
  - BREAST HAEMORRHAGE [None]
  - DISEASE PROGRESSION [None]
  - DRUG INEFFECTIVE [None]
  - IMMUNE SYSTEM DISORDER [None]
  - REFUSAL OF TREATMENT BY PATIENT [None]
